FAERS Safety Report 13975583 (Version 1)
Quarter: 2017Q3

REPORT INFORMATION
  Report Type: Spontaneous
  Country: FR (occurrence: FR)
  Receive Date: 20170915
  Receipt Date: 20170915
  Transmission Date: 20171128
  Serious: Yes (Hospitalization)
  Sender: FDA-Public Use
  Company Number: FR-SA-2017SA169289

PATIENT
  Age: 67 Year
  Sex: Female

DRUGS (7)
  1. AMIKACIN [Suspect]
     Active Substance: AMIKACIN
     Indication: SEPTIC SHOCK
     Route: 042
     Dates: start: 20170819
  2. TAHOR [Concomitant]
     Active Substance: ATORVASTATIN CALCIUM
     Indication: HYPERCHOLESTEROLAEMIA
     Dosage: STRENGTH: 40 MG
     Route: 048
     Dates: start: 2013
  3. PROZAC [Concomitant]
     Active Substance: FLUOXETINE HYDROCHLORIDE
     Indication: DEPRESSION
     Dosage: STRENGTH: 20 MG
     Route: 048
     Dates: start: 2015
  4. AMIKACIN [Suspect]
     Active Substance: AMIKACIN
     Indication: SEPTIC SHOCK
     Route: 042
     Dates: start: 2017, end: 20170823
  5. OFLOCET [Suspect]
     Active Substance: OFLOXACIN
     Indication: SEPTIC SHOCK
     Dosage: FORM-FILM COATED DIVISIBLE TABLET
     Route: 048
     Dates: start: 20170818, end: 20170819
  6. ATARAX [Concomitant]
     Active Substance: HYDROXYZINE HYDROCHLORIDE
     Indication: ANXIETY
     Dosage: FILM COATED DIVISIBLE TABLET; STRENGTH: 25 MG
     Route: 048
     Dates: start: 2015
  7. CEFOTAXIME BASE [Suspect]
     Active Substance: CEFOTAXIME SODIUM
     Indication: SEPTIC SHOCK
     Route: 042
     Dates: start: 20170819

REACTIONS (1)
  - Ototoxicity [Not Recovered/Not Resolved]

NARRATIVE: CASE EVENT DATE: 20170820
